FAERS Safety Report 13357271 (Version 1)
Quarter: 2017Q1

REPORT INFORMATION
  Report Type: Spontaneous
  Country: FR (occurrence: FR)
  Receive Date: 20170322
  Receipt Date: 20170322
  Transmission Date: 20170429
  Serious: Yes (Hospitalization, Other)
  Sender: FDA-Public Use
  Company Number: FR-AMGEN-FRASP2017040093

PATIENT
  Age: 59 Year
  Sex: Male

DRUGS (19)
  1. NPLATE [Suspect]
     Active Substance: ROMIPLOSTIM
     Dosage: 10 MUG/KG, UNK
     Route: 058
  2. BACLOFENE [Concomitant]
     Active Substance: BACLOFEN
     Dosage: 10 UNK, TID
  3. ORACILLIN [Concomitant]
     Active Substance: PENICILLIN V BENZATHINE
     Dosage: 1 MILLION UNIT, BID
  4. APIDRA [Concomitant]
     Active Substance: INSULIN GLULISINE
  5. OFLOCET [Concomitant]
     Active Substance: OFLOXACIN
     Dosage: 200 UNK, BID
     Dates: end: 20170128
  6. XANAX [Concomitant]
     Active Substance: ALPRAZOLAM
     Dosage: 0.25 UNK, TID (IF NEEDED)
  7. TOUJEO [Concomitant]
     Active Substance: INSULIN GLARGINE
     Dosage: 28 UNIT, QD
  8. MYFORTIC [Concomitant]
     Active Substance: MYCOPHENOLATE SODIUM
     Dosage: 1 DF, BID
  9. BICARBONATE [Concomitant]
     Active Substance: BICARBONATE ION
  10. CERTICAN [Concomitant]
     Active Substance: EVEROLIMUS
     Indication: NEPHROTIC SYNDROME
     Dosage: 1 MG, BID
  11. ARANESP [Suspect]
     Active Substance: DARBEPOETIN ALFA
     Indication: PRODUCT USED FOR UNKNOWN INDICATION
     Dosage: 200 MUG, Q3WK
     Route: 058
  12. AMLOR [Concomitant]
     Active Substance: AMLODIPINE BESYLATE
     Dosage: 10 UNK, QD
  13. PANTOPRAZOLE [Concomitant]
     Active Substance: PANTOPRAZOLE SODIUM
     Dosage: 10 UNK, QD
  14. SPECIAFOLDINE [Concomitant]
     Active Substance: FOLIC ACID
     Dosage: 5 UNK, TID
  15. PARACETAMOL [Concomitant]
     Active Substance: ACETAMINOPHEN
     Indication: PAIN
     Dosage: 1 DF, TID
  16. FLAGYL [Concomitant]
     Active Substance: METRONIDAZOLE\METRONIDAZOLE HYDROCHLORIDE
     Dosage: 500 UNK, TID
     Dates: end: 20170121
  17. BISOPROLOL [Concomitant]
     Active Substance: BISOPROLOL
     Dosage: 1.25 UNK, QD
  18. NPLATE [Suspect]
     Active Substance: ROMIPLOSTIM
     Indication: IMMUNE THROMBOCYTOPENIC PURPURA
     Dosage: 650 MUG, QWK
     Route: 058
     Dates: start: 20170103, end: 20170302
  19. SOLUPRED [Concomitant]
     Active Substance: PREDNISOLONE
     Dosage: 5 MG, QD

REACTIONS (1)
  - Thrombotic microangiopathy [Recovering/Resolving]

NARRATIVE: CASE EVENT DATE: 20170113
